FAERS Safety Report 23621070 (Version 1)
Quarter: 2024Q1

REPORT INFORMATION
  Report Type: Spontaneous
  Country: PT (occurrence: PT)
  Receive Date: 20240312
  Receipt Date: 20240312
  Transmission Date: 20240409
  Serious: Yes (Other)
  Sender: FDA-Public Use
  Company Number: None

PATIENT
  Age: 74 Year
  Sex: Female

DRUGS (4)
  1. GABAPENTIN [Suspect]
     Active Substance: GABAPENTIN
     Indication: Burning mouth syndrome
     Dosage: THE RECOMMENDED DOSAGE IS 400MG BUT THE USER HAS TAKEN 4 100MG CAPSULES 2 HOURS BEFORE BED.
     Route: 048
     Dates: start: 20240110, end: 20240209
  2. GABAPENTIN [Suspect]
     Active Substance: GABAPENTIN
     Indication: Burning mouth syndrome
     Route: 048
     Dates: start: 20240209
  3. RIVOTRIL [Concomitant]
     Active Substance: CLONAZEPAM
     Indication: Product used for unknown indication
     Dosage: PILL
     Route: 065
     Dates: start: 202302
  4. ATORVASTATIN [Concomitant]
     Active Substance: ATORVASTATIN
     Indication: Product used for unknown indication
     Route: 065
     Dates: start: 202302

REACTIONS (3)
  - Arthralgia [Recovering/Resolving]
  - Myalgia [Recovering/Resolving]
  - Arthralgia [Recovering/Resolving]

NARRATIVE: CASE EVENT DATE: 20240115
